FAERS Safety Report 4383611-1 (Version None)
Quarter: 2004Q2

REPORT INFORMATION
  Report Type: 
  Country: None (occurrence: None)
  Receive Date: 20040618
  Receipt Date: 20040615
  Transmission Date: 20050107
  Serious: Yes (Hospitalization, Disabling)
  Sender: FDA-Public Use
  Company Number: 03P-144-0238950-00

PATIENT
  Age: 34 Year
  Sex: Female

DRUGS (4)
  1. RITONAVIR SOFT GELATIN CAPSULES (NORVIR) (RITONAVIR) (RITONAVIR) [Suspect]
     Indication: HIV INFECTION
     Dosage: 600 MG, 2 IN 1 D
     Dates: start: 19990601, end: 20000816
  2. ERGOTAMINE TARTRATE (RGOTAMINE TARTRATE) [Suspect]
     Indication: HEADACHE
     Dosage: 3 MG , ONCE
     Dates: start: 20000801, end: 20000801
  3. LAMIVUDINE [Concomitant]
  4. STAVUDINE [Concomitant]

REACTIONS (20)
  - ARTERIAL STENOSIS [None]
  - BLINDNESS [None]
  - BRAIN STEM SYNDROME [None]
  - CEREBRAL INFARCTION [None]
  - CONFUSIONAL STATE [None]
  - DEPRESSED LEVEL OF CONSCIOUSNESS [None]
  - DISORIENTATION [None]
  - DIZZINESS [None]
  - DRUG INTERACTION [None]
  - DRUG LEVEL ABOVE THERAPEUTIC [None]
  - ERGOT POISONING [None]
  - FEELING COLD [None]
  - GASTROENTERITIS [None]
  - HEADACHE [None]
  - HEPATOMEGALY [None]
  - HYPOPERFUSION [None]
  - HYPOTENSION [None]
  - LOCKED-IN SYNDROME [None]
  - PYREXIA [None]
  - VASCULITIS [None]
